FAERS Safety Report 8261532-1 (Version None)
Quarter: 2012Q2

REPORT INFORMATION
  Report Type: 
  Country: None (occurrence: None)
  Receive Date: 20120405
  Receipt Date: 20120328
  Transmission Date: 20120825
  Serious: Yes (Other)
  Sender: FDA-Public Use
  Company Number: JP-ASTELLAS-2012JP002763

PATIENT
  Age: 51 Year
  Sex: Female

DRUGS (1)
  1. PROGRAF [Suspect]
     Dosage: UNK
     Route: 065

REACTIONS (1)
  - SICK SINUS SYNDROME [None]
